FAERS Safety Report 25453372 (Version 3)
Quarter: 2025Q3

REPORT INFORMATION
  Report Type: Report from Study
  Country: CO (occurrence: CO)
  Receive Date: 20250619
  Receipt Date: 20250725
  Transmission Date: 20251020
  Serious: Yes (Hospitalization, Other)
  Sender: ABBVIE
  Company Number: CO-ABBVIE-6327695

PATIENT
  Age: 67 Year
  Sex: Male
  Weight: 70 kg

DRUGS (3)
  1. SKYRIZI [Suspect]
     Active Substance: RISANKIZUMAB-RZAA
     Indication: Psoriasis
     Dosage: FORM STRENGTH: 150 MG
     Route: 058
     Dates: start: 20231004
  2. LOSARTAN [Concomitant]
     Active Substance: LOSARTAN
     Indication: Hypertension
     Dates: start: 2023
  3. OMEPRAZOLE [Concomitant]
     Active Substance: OMEPRAZOLE
     Indication: Gastritis
     Route: 048

REACTIONS (10)
  - Intestinal obstruction [Recovering/Resolving]
  - Weight decreased [Unknown]
  - Asthenia [Unknown]
  - Oesophageal obstruction [Recovering/Resolving]
  - Appendicitis [Recovering/Resolving]
  - Peritonitis [Recovering/Resolving]
  - Gastrointestinal inflammation [Recovering/Resolving]
  - Blood potassium decreased [Unknown]
  - Abdominal pain [Recovering/Resolving]
  - Weight increased [Unknown]

NARRATIVE: CASE EVENT DATE: 20250101
